FAERS Safety Report 9878924 (Version 1)
Quarter: 2014Q1

REPORT INFORMATION
  Report Type: Spontaneous
  Country: US (occurrence: US)
  Receive Date: 20140206
  Receipt Date: 20140206
  Transmission Date: 20141002
  Serious: Yes (Death)
  Sender: FDA-Public Use
  Company Number: US-SA-2014SA014167

PATIENT
  Age: 73 Year
  Sex: Male

DRUGS (4)
  1. LANTUS SOLOSTAR [Suspect]
     Indication: TYPE 2 DIABETES MELLITUS
     Dosage: DOSE:20 UNIT(S)
     Route: 065
     Dates: end: 20140107
  2. APIDRA SOLOSTAR [Suspect]
     Indication: TYPE 2 DIABETES MELLITUS
     Dosage: DOSE: SLIDING SCALE AT BEDTIME DOSE:20 UNIT(S)
     Route: 065
     Dates: end: 20140107
  3. SOLOSTAR [Concomitant]
     Dates: end: 20140107
  4. SOLOSTAR [Concomitant]
     Dates: end: 20140107

REACTIONS (1)
  - Renal disorder [Fatal]
